FAERS Safety Report 7244422-2 (Version None)
Quarter: 2011Q1

REPORT INFORMATION
  Report Type: 
  Country: None (occurrence: None)
  Receive Date: 20110119
  Receipt Date: 20110119
  Transmission Date: 20110831
  Serious: Yes (Life-Threatening, Hospitalization)
  Sender: FDA-Public Use
  Company Number: None

PATIENT
  Sex: Male
  Weight: 79.3795 kg

DRUGS (1)
  1. TRIAD ALCOHOL PREP PADS COPAXONE KIT [Suspect]
     Indication: GASTROENTERITIS
     Dates: start: 20110106, end: 20110107

REACTIONS (9)
  - NAUSEA [None]
  - VOMITING [None]
  - BACTERIAL INFECTION [None]
  - MALAISE [None]
  - FAECAL INCONTINENCE [None]
  - ABASIA [None]
  - PAIN [None]
  - INCOHERENT [None]
  - DIARRHOEA [None]
